FAERS Safety Report 12713575 (Version 1)
Quarter: 2016Q3

REPORT INFORMATION
  Report Type: Report from Study
  Country: US (occurrence: US)
  Receive Date: 20160903
  Receipt Date: 20160903
  Transmission Date: 20161109
  Serious: No
  Sender: FDA-Public Use
  Company Number: PHEH2016US022149

PATIENT
  Sex: Female

DRUGS (2)
  1. BIDIL [Concomitant]
     Active Substance: HYDRALAZINE HYDROCHLORIDE\ISOSORBIDE DINITRATE
     Indication: PRODUCT USED FOR UNKNOWN INDICATION
     Dosage: UNK
     Route: 065
  2. ENTRESTO [Suspect]
     Active Substance: SACUBITRIL\VALSARTAN
     Indication: PRODUCT USED FOR UNKNOWN INDICATION
     Dosage: UNK UNK, QD
     Route: 065

REACTIONS (7)
  - Inappropriate schedule of drug administration [Unknown]
  - Malaise [Unknown]
  - Eating disorder [Unknown]
  - Blood potassium increased [Unknown]
  - Weight increased [Unknown]
  - Asthenia [Unknown]
  - Dyspnoea [Unknown]
